FAERS Safety Report 25123924 (Version 1)
Quarter: 2025Q1

REPORT INFORMATION
  Report Type: Spontaneous
  Country: US (occurrence: US)
  Receive Date: 20250326
  Receipt Date: 20250326
  Transmission Date: 20250408
  Serious: No
  Sender: Unknown Manufacturer
  Company Number: US-MELINTA THERAPEUTICS, LLC-US-MLNT-24-00496

PATIENT
  Age: 74 Year
  Sex: Male

DRUGS (3)
  1. METOPROLOL SUCCINATE [Suspect]
     Active Substance: METOPROLOL SUCCINATE
     Indication: Product used for unknown indication
     Route: 048
  2. VALSARTAN [Concomitant]
     Active Substance: VALSARTAN
     Indication: Product used for unknown indication
  3. CHLORTHALIDONE [Concomitant]
     Active Substance: CHLORTHALIDONE
     Indication: Product used for unknown indication

REACTIONS (1)
  - Glomerular filtration rate decreased [Unknown]
